FAERS Safety Report 7881514-9 (Version None)
Quarter: 2011Q4

REPORT INFORMATION
  Report Type: 
  Country: None (occurrence: None)
  Receive Date: 20111101
  Receipt Date: 20110525
  Transmission Date: 20120403
  Serious: No
  Sender: FDA-Public Use
  Company Number: US-AMGEN-USASP2011027360

PATIENT
  Age: 61 Year
  Sex: Male
  Weight: 81.633 kg

DRUGS (16)
  1. AMLODIPINE [Concomitant]
     Dosage: 5 MG, UNK
  2. VITAMIN B-12 [Concomitant]
     Dosage: 1000 MUG, UNK
  3. PROTONIX [Concomitant]
     Dosage: 40 MG, UNK
  4. FOLIC ACID [Concomitant]
     Dosage: 1 MG, UNK
  5. FLAXSEED OIL [Concomitant]
  6. DIOVAN [Concomitant]
     Dosage: 80 MG, UNK
  7. SIMVASTATIN [Concomitant]
     Dosage: 20 MG, UNK
  8. CALCIUM [Concomitant]
     Dosage: 500 MG, UNK
  9. EFFIENT [Concomitant]
     Dosage: 5 MG, UNK
  10. FEXOFENADINE [Concomitant]
     Dosage: 30 MG, UNK
  11. ENBREL [Suspect]
     Indication: RHEUMATOID ARTHRITIS
     Dosage: 50 MG, QWK
  12. VITAMIN D [Concomitant]
     Dosage: 1000 IU, UNK
  13. ASPIRIN [Concomitant]
     Dosage: 81 MG, UNK
  14. METOPROLOL TARTRATE [Concomitant]
     Dosage: 50 MG, UNK
  15. CENTRUM SILVER                     /01292501/ [Concomitant]
  16. CORTISONE                          /00014602/ [Concomitant]

REACTIONS (3)
  - RASH PRURITIC [None]
  - ERYTHEMA [None]
  - SWELLING [None]
